FAERS Safety Report 5346322-1 (Version None)
Quarter: 2007Q2

REPORT INFORMATION
  Report Type: 
  Country: None (occurrence: None)
  Receive Date: 20070605
  Receipt Date: 20070525
  Transmission Date: 20071010
  Serious: Yes (Hospitalization)
  Sender: FDA-Public Use
  Company Number: JP-ALLERGAN-0705758US

PATIENT
  Sex: Female

DRUGS (8)
  1. BOTULINUM TOXIN TYPE A - GENERAL [Suspect]
     Indication: TORTICOLLIS
     Dosage: 230 UNITS, SINGLE
     Route: 030
     Dates: start: 20040224, end: 20040224
  2. BOTULINUM TOXIN TYPE A - GENERAL [Suspect]
     Dosage: 690 UNITS, SINGLE
     Route: 030
     Dates: start: 20040316, end: 20040316
  3. ENALAPRIL MALEATE [Concomitant]
     Indication: HYPERTENSION
     Dosage: 2.5 MG, QD
     Route: 048
  4. LEVODOPA W/BENSERAZIDE/ [Concomitant]
     Indication: PARKINSON'S DISEASE
     Dosage: 300 MG, QD
     Route: 048
  5. TIZANIDINE HCL [Concomitant]
     Indication: TORTICOLLIS
     Dosage: 3 MG, QD
     Route: 048
     Dates: start: 20040202, end: 20040329
  6. THYROID TAB [Concomitant]
     Indication: AUTOIMMUNE THYROIDITIS
     Dosage: 100 UG, QD
     Route: 048
  7. REBAMIPIDE [Concomitant]
     Indication: GASTRITIS
     Dosage: 200 MG, QD
     Route: 048
  8. FAMOTIDINE [Concomitant]
     Indication: GASTRITIS
     Dosage: 20 MG, QD
     Route: 048

REACTIONS (4)
  - DYSPNOEA [None]
  - MONOCYTE COUNT INCREASED [None]
  - POSTURE ABNORMAL [None]
  - RASH [None]
